FAERS Safety Report 9938587 (Version 2)
Quarter: 2014Q1

REPORT INFORMATION
  Report Type: Spontaneous
  Country: DE (occurrence: DE)
  Receive Date: 20140303
  Receipt Date: 20140320
  Transmission Date: 20141002
  Serious: Yes (Death, Hospitalization, Other)
  Sender: FDA-Public Use
  Company Number: DE-ROCHE-1353416

PATIENT
  Sex: Female
  Weight: 75 kg

DRUGS (5)
  1. AVASTIN [Suspect]
     Indication: BREAST CANCER METASTATIC
     Dosage: DAY 1, DAY 15 - CYCLE OF 4 WEEKS
     Route: 042
     Dates: start: 20120731, end: 20120814
  2. NAB-PACLITAXEL [Suspect]
     Indication: BREAST CANCER METASTATIC
     Dosage: DAY 1, DAY 8, DAY 15 - CYCLE OF 4 WEEKS
     Route: 042
     Dates: start: 20120731, end: 20120814
  3. FILGRASTIM [Concomitant]
     Dosage: 30000 IU, DAY 1, 8 - CYCLE OF 4 WEEKS
     Route: 058
     Dates: start: 20120731, end: 20120814
  4. DEXAMETHASON [Concomitant]
     Indication: VOMITING
     Dosage: DAY 1, 8, 15 - CYCLE OF 4 WEEKS
     Route: 042
     Dates: start: 20120731, end: 20120814
  5. KEVATRIL [Concomitant]
     Indication: VOMITING
     Dosage: DAY 1, 8, 15 - CYCLE OF 4 WEEKS
     Route: 042
     Dates: start: 20120731, end: 20120814

REACTIONS (8)
  - Multi-organ failure [Fatal]
  - Pulmonary embolism [Fatal]
  - Dyspnoea [Unknown]
  - Rash [Not Recovered/Not Resolved]
  - Skin necrosis [Unknown]
  - Cystitis [Unknown]
  - Pain in extremity [Unknown]
  - Body temperature increased [Unknown]
